FAERS Safety Report 18298585 (Version 1)
Quarter: 2020Q3

REPORT INFORMATION
  Report Type: Report from Study
  Country: CH (occurrence: CH)
  Receive Date: 20200922
  Receipt Date: 20200922
  Transmission Date: 20201103
  Serious: Yes (Disabling)
  Sender: FDA-Public Use
  Company Number: CH-PFIZER INC-2018-04360

PATIENT
  Age: 75 Year
  Sex: Male
  Weight: 80.6 kg

DRUGS (6)
  1. ELOCOM [Concomitant]
     Active Substance: MOMETASONE FUROATE
     Indication: RASH
     Dosage: UNK, AS NEEDED
     Dates: start: 20140825
  2. BINIMETINIB [Suspect]
     Active Substance: BINIMETINIB
     Indication: MALIGNANT MELANOMA
     Dosage: 30 MG, 2X/DAY
     Route: 048
     Dates: start: 20140723, end: 20180820
  3. EXFORGE [Concomitant]
     Active Substance: AMLODIPINE BESYLATE\VALSARTAN
     Indication: HYPERTENSION
     Dosage: UNK UNK, 1X/DAY 15/160 MG, QD
     Route: 048
     Dates: start: 200407
  4. BETNOVATE SCALP APPLICATION [Concomitant]
     Indication: RASH MACULO-PAPULAR
     Dosage: UNK, AS NEEDED
     Dates: start: 20141015
  5. DEXAFREE [Concomitant]
     Active Substance: DEXAMETHASONE SODIUM PHOSPHATE
     Indication: RETINOPATHY
     Dosage: UNK, 2X/DAY
     Dates: start: 20160301
  6. PHENOXYMETHYLPENICILLIN [Concomitant]
     Active Substance: PENICILLIN V
     Indication: ERYSIPELAS
     Dosage: 500000.0 IU, 2X/DAY
     Dates: start: 20160718

REACTIONS (1)
  - Retinal vein thrombosis [Recovering/Resolving]

NARRATIVE: CASE EVENT DATE: 20180820
